FAERS Safety Report 15300809 (Version 1)
Quarter: 2018Q3

REPORT INFORMATION
  Report Type: Spontaneous
  Country: US (occurrence: US)
  Receive Date: 20180821
  Receipt Date: 20180821
  Transmission Date: 20181010
  Serious: No
  Sender: FDA-Public Use
  Company Number: US-ENDO PHARMACEUTICALS INC-2017-009658

PATIENT
  Age: 33 Year
  Sex: Female

DRUGS (3)
  1. LABETALOL [Suspect]
     Active Substance: LABETALOL\LABETALOL HYDROCHLORIDE
     Dosage: 100 MG, BID
     Route: 065
     Dates: start: 20171206, end: 20171208
  2. LABETALOL [Suspect]
     Active Substance: LABETALOL\LABETALOL HYDROCHLORIDE
     Dosage: 200 MG, BID
     Route: 065
     Dates: start: 20171208
  3. NATURE?THROID [Concomitant]
     Active Substance: THYROID, PORCINE
     Indication: HYPERTHYROIDISM

REACTIONS (3)
  - Back pain [Not Recovered/Not Resolved]
  - Biliary colic [Not Recovered/Not Resolved]
  - Exposure during pregnancy [Unknown]

NARRATIVE: CASE EVENT DATE: 201712
